FAERS Safety Report 6796312-7 (Version None)
Quarter: 2010Q2

REPORT INFORMATION
  Report Type: 
  Country: None (occurrence: None)
  Receive Date: 20100625
  Receipt Date: 20100622
  Transmission Date: 20101027
  Serious: Yes (Other)
  Sender: FDA-Public Use
  Company Number: US-AMGEN-US349136

PATIENT
  Sex: Female
  Weight: 48 kg

DRUGS (6)
  1. NPLATE [Suspect]
     Indication: IDIOPATHIC THROMBOCYTOPENIC PURPURA
     Dates: start: 20081209, end: 20090217
  2. SYNTHROID [Concomitant]
     Route: 065
  3. PLAQUENIL [Concomitant]
     Dates: start: 20090324
  4. PREDNISONE [Concomitant]
     Route: 065
  5. NORLUTATE [Concomitant]
     Route: 065
  6. ELTROMBOPAG [Concomitant]

REACTIONS (3)
  - DRUG INEFFECTIVE [None]
  - HEADACHE [None]
  - INTRACRANIAL VENOUS SINUS THROMBOSIS [None]
